FAERS Safety Report 25650988 (Version 1)
Quarter: 2025Q3

REPORT INFORMATION
  Report Type: Spontaneous
  Country: US (occurrence: US)
  Receive Date: 20250806
  Receipt Date: 20250806
  Transmission Date: 20251020
  Serious: No
  Sender: SANOFI AVENTIS
  Company Number: US-SA-2025SA229276

PATIENT
  Sex: Male

DRUGS (32)
  1. DUPIXENT [Suspect]
     Active Substance: DUPILUMAB
     Indication: Type 2 diabetes mellitus
     Dosage: 300 MG, QOW
     Route: 058
  2. VITAMIN C [Concomitant]
     Active Substance: ASCORBIC ACID
  3. Carvedilol +pharma [Concomitant]
  4. CLOBETASOL [Concomitant]
     Active Substance: CLOBETASOL
  5. CLONIDINE [Concomitant]
     Active Substance: CLONIDINE
  6. CLONIDINE [Concomitant]
     Active Substance: CLONIDINE
  7. Cyanocobalamin Tsururhara [Concomitant]
  8. DOXYCYCLINE [Concomitant]
     Active Substance: DOXYCYCLINE
  9. EPIPEN [Concomitant]
     Active Substance: EPINEPHRINE
  10. EUCRISA [Concomitant]
     Active Substance: CRISABOROLE
  11. FLUOCINOLONE [Concomitant]
     Active Substance: FLUOCINOLONE
  12. GLUCAGON [Concomitant]
     Active Substance: GLUCAGON
  13. HYDRALAZINE [Concomitant]
     Active Substance: HYDRALAZINE HYDROCHLORIDE
  14. HYDROXYCHLOROQUINE SULFATE [Concomitant]
     Active Substance: HYDROXYCHLOROQUINE SULFATE
  15. LISINOPRIL [Concomitant]
     Active Substance: LISINOPRIL
  16. METHOTREXATE [Concomitant]
     Active Substance: METHOTREXATE
  17. MOUNJARO [Concomitant]
     Active Substance: TIRZEPATIDE
  18. NOVOLOG [Concomitant]
     Active Substance: INSULIN ASPART
  19. ONDANSETRON [Concomitant]
     Active Substance: ONDANSETRON
  20. PANTOPRAZOLE [Concomitant]
     Active Substance: PANTOPRAZOLE
  21. REPATHA [Concomitant]
     Active Substance: EVOLOCUMAB
  22. SILVER SULFADIAZINE [Concomitant]
     Active Substance: SILVER SULFADIAZINE
  23. TACROLIMUS [Concomitant]
     Active Substance: TACROLIMUS
  24. TADALAFIL [Concomitant]
     Active Substance: TADALAFIL
  25. Triamterene C [Concomitant]
  26. VITAMIN D3 [Concomitant]
     Active Substance: CHOLECALCIFEROL
  27. AMJEVITA [Concomitant]
     Active Substance: ADALIMUMAB-ATTO
  28. AMLODIPINE [Concomitant]
     Active Substance: AMLODIPINE BESYLATE
  29. Cyanocobalamin Tsururhara [Concomitant]
  30. HUMIRA [Concomitant]
     Active Substance: ADALIMUMAB
  31. METFORMIN [Concomitant]
     Active Substance: METFORMIN HYDROCHLORIDE
  32. TOUJEO [Concomitant]
     Active Substance: INSULIN GLARGINE

REACTIONS (2)
  - Toothache [Not Recovered/Not Resolved]
  - Product use in unapproved indication [Unknown]
